FAERS Safety Report 6189206-1 (Version None)
Quarter: 2009Q2

REPORT INFORMATION
  Report Type: 
  Country: None (occurrence: None)
  Receive Date: 20090512
  Receipt Date: 20090427
  Transmission Date: 20091009
  Serious: Yes (Hospitalization)
  Sender: FDA-Public Use
  Company Number: 2009000780

PATIENT
  Age: 61 Year
  Sex: Male

DRUGS (16)
  1. ERLOTINIB       (ERLOTINIB) [Suspect]
     Indication: PANCREATIC CARCINOMA METASTATIC
     Dosage: (100 MG,QD),ORAL
     Route: 048
     Dates: start: 20090225
  2. GEMCITABINE [Suspect]
     Indication: PANCREATIC CARCINOMA METASTATIC
     Dosage: (1000 MG/M2,QW), INTRAVENOUS
     Route: 042
     Dates: start: 20090225
  3. GLICLAZIDE           (GLICLAZIDE) [Concomitant]
  4. METFORMIN HCL [Concomitant]
  5. ENOXAPARIN ENOXAPARIN SODIUM    (HEPARIN-FRACTION, SODIUM SALT) [Concomitant]
  6. RAMIPRIL [Concomitant]
  7. DICLOFENAC SODIUM [Concomitant]
  8. PANTOPRAZOLE SODIUM [Concomitant]
  9. FENTANYL-100 [Concomitant]
  10. MORPHINE SULFATE INJ [Concomitant]
  11. POTASSIUM CHLORIDE [Concomitant]
  12. SPIRONOLACTONE [Concomitant]
  13. AUGMENTIN '125' [Concomitant]
  14. METHYLPREDNISOLONE 16MG TAB [Concomitant]
  15. HYDROCHLOROTHTAZIDE (HYDROCHLOROTHIAZTDE) [Concomitant]
  16. LOPERAMIDE HYDROCHLORIDE [Concomitant]

REACTIONS (1)
  - ANAEMIA [None]
